FAERS Safety Report 18747591 (Version 2)
Quarter: 2021Q1

REPORT INFORMATION
  Report Type: Spontaneous
  Country: US (occurrence: US)
  Receive Date: 20210115
  Receipt Date: 20210126
  Transmission Date: 20210419
  Serious: No
  Sender: FDA-Public Use
  Company Number: US-BAYER-2021-020251

PATIENT
  Sex: Female
  Weight: 42 kg

DRUGS (7)
  1. VITAFUSION MULTIVITES [Concomitant]
     Dosage: UNK, Q4HR
     Route: 048
     Dates: start: 1999
  2. BETASERON [Suspect]
     Active Substance: INTERFERON BETA-1B
     Indication: MULTIPLE SCLEROSIS
     Dosage: UNK
     Dates: end: 2008
  3. TIZANIDINE. [Concomitant]
     Active Substance: TIZANIDINE
     Dosage: 2 DF, BID VIA G?TUBE
     Route: 048
     Dates: start: 1999
  4. BACLOFEN. [Concomitant]
     Active Substance: BACLOFEN
     Dosage: 2 DF, BID VIA G?TUBE
     Route: 048
     Dates: start: 1999
  5. OXYBUTYNIN. [Concomitant]
     Active Substance: OXYBUTYNIN CHLORIDE
     Dosage: 10 MG
     Route: 048
     Dates: start: 1999
  6. GABAPENTIN. [Concomitant]
     Active Substance: GABAPENTIN
     Indication: PAIN
     Dosage: 300 MG, BID VIA G?TUBE
     Dates: start: 1999
  7. GABAPENTIN. [Concomitant]
     Active Substance: GABAPENTIN
     Indication: MULTIPLE SCLEROSIS

REACTIONS (1)
  - Illness [None]
